FAERS Safety Report 6535009-5 (Version None)
Quarter: 2010Q1

REPORT INFORMATION
  Report Type: 
  Country: None (occurrence: None)
  Receive Date: 20100110
  Receipt Date: 20100110
  Transmission Date: 20100710
  Serious: Yes (Hospitalization)
  Sender: FDA-Public Use
  Company Number: None

PATIENT
  Age: 60 Year
  Sex: Male
  Weight: 118 kg

DRUGS (13)
  1. ABILIFY [Suspect]
     Indication: SCHIZOPHRENIA
     Dosage: 10MG PO QD
     Route: 048
     Dates: start: 20080301
  2. ACTOS [Concomitant]
  3. ASPIRIN [Concomitant]
  4. GLIPIZIDE [Concomitant]
  5. HUMALOG INSULIN SLIDING SCALE [Concomitant]
  6. LANTUS [Concomitant]
  7. LASIX [Concomitant]
  8. LEVOTHYROXINE SODIUM [Concomitant]
  9. METOPROLOL [Concomitant]
  10. POTASSIUM CHLORIDE [Concomitant]
  11. NEURONTIN [Concomitant]
  12. ELAVIL [Concomitant]
  13. ZANTAC [Concomitant]

REACTIONS (4)
  - FALL [None]
  - FEELING ABNORMAL [None]
  - HYPOGLYCAEMIA [None]
  - OVERDOSE [None]
